FAERS Safety Report 15082532 (Version 3)
Quarter: 2018Q3

REPORT INFORMATION
  Report Type: Spontaneous
  Country: JP (occurrence: JP)
  Receive Date: 20180628
  Receipt Date: 20180711
  Transmission Date: 20181010
  Serious: Yes (Hospitalization, Other)
  Sender: FDA-Public Use
  Company Number: JP-PFIZER INC-2018260913

PATIENT
  Age: 71 Year
  Sex: Male
  Weight: 66 kg

DRUGS (1)
  1. ADRENALINE [Suspect]
     Active Substance: EPINEPHRINE
     Indication: ANAPHYLACTIC REACTION
     Dosage: 50 UG, UNK
     Route: 040

REACTIONS (6)
  - Angiopathy [Recovered/Resolved]
  - Mitral valve incompetence [Recovering/Resolving]
  - Systolic anterior motion of mitral valve [Recovered/Resolved]
  - Haemodynamic instability [Recovered/Resolved]
  - Left ventricle outflow tract obstruction [Recovering/Resolving]
  - Condition aggravated [Recovering/Resolving]
